FAERS Safety Report 11272102 (Version 2)
Quarter: 2015Q3

REPORT INFORMATION
  Report Type: Report from Study
  Country: MX (occurrence: MX)
  Receive Date: 20150715
  Receipt Date: 20150728
  Transmission Date: 20151125
  Serious: Yes (Hospitalization)
  Sender: FDA-Public Use
  Company Number: PHHY2015MX080021

PATIENT
  Sex: Female

DRUGS (3)
  1. LIBERTRIM//TRIMEBUTINE [Concomitant]
     Indication: GASTRITIS
     Dosage: 3 DF, QD
     Route: 048
     Dates: start: 20150616
  2. NEXIUM [Concomitant]
     Active Substance: ESOMEPRAZOLE MAGNESIUM
     Indication: GASTRITIS
     Dosage: 1 DF, QD
     Route: 048
     Dates: start: 20150616
  3. ZELMAC [Suspect]
     Active Substance: TEGASEROD
     Indication: IRRITABLE BOWEL SYNDROME
     Dosage: 2 DF(6 MG), QD
     Route: 048
     Dates: start: 20150616

REACTIONS (2)
  - Musculoskeletal chest pain [Recovering/Resolving]
  - Colitis [Recovering/Resolving]
